FAERS Safety Report 5669869-7 (Version None)
Quarter: 2008Q1

REPORT INFORMATION
  Report Type: 
  Country: None (occurrence: None)
  Receive Date: 20080314
  Receipt Date: 20080314
  Transmission Date: 20080703
  Serious: No
  Sender: FDA-Public Use
  Company Number: None

PATIENT
  Sex: Male
  Weight: 86.1834 kg

DRUGS (1)
  1. ZETIA [Suspect]
     Indication: BLOOD CHOLESTEROL
     Dosage: 10 MG 1 DAILY ORAL
     Route: 048
     Dates: start: 20070101, end: 20070601

REACTIONS (2)
  - ABASIA [None]
  - PAIN IN EXTREMITY [None]
